FAERS Safety Report 7361524-0 (Version None)
Quarter: 2011Q1

REPORT INFORMATION
  Report Type: 
  Country: None (occurrence: None)
  Receive Date: 20110318
  Receipt Date: 20110309
  Transmission Date: 20110831
  Serious: Yes (Other)
  Sender: FDA-Public Use
  Company Number: PHHY2011CR19621

PATIENT
  Age: 85 Year
  Sex: Male

DRUGS (4)
  1. COAPROVEL [Concomitant]
     Dosage: 1 DF, UNK
     Route: 048
  2. INSULIN [Concomitant]
     Indication: DIABETES MELLITUS
     Dosage: 20 U IN MORNING AND 12 U IN EVENING
     Route: 058
  3. EXELON [Suspect]
     Indication: DEMENTIA
     Dosage: 9.5 MG / 24 HOURS
     Route: 062
  4. CONCOR [Concomitant]
     Dosage: 5 MG / DAY
     Route: 048

REACTIONS (2)
  - VENTRICULAR EXTRASYSTOLES [None]
  - BUNDLE BRANCH BLOCK LEFT [None]
